FAERS Safety Report 12231663 (Version 7)
Quarter: 2019Q3

REPORT INFORMATION
  Report Type: Spontaneous
  Country: US (occurrence: US)
  Receive Date: 20160401
  Receipt Date: 20190919
  Transmission Date: 20191004
  Serious: Yes (Hospitalization, Other)
  Sender: FDA-Public Use
  Company Number: US-PFIZER INC-2016188673

PATIENT
  Age: 66 Year
  Sex: Female
  Weight: 106.1 kg

DRUGS (3)
  1. XELJANZ [Suspect]
     Active Substance: TOFACITINIB CITRATE
     Indication: RHEUMATOID ARTHRITIS
     Dosage: 5 MG, 2X/DAY
     Route: 048
     Dates: start: 20150305
  2. XELJANZ [Suspect]
     Active Substance: TOFACITINIB CITRATE
     Dosage: 5 MG, 2X/DAY
     Dates: start: 20150405
  3. XELJANZ [Suspect]
     Active Substance: TOFACITINIB CITRATE
     Dosage: 5 MG, 2X/DAY
     Route: 048
     Dates: start: 20150305

REACTIONS (10)
  - Dyspnoea [Recovered/Resolved]
  - Cataract [Recovered/Resolved]
  - Pulmonary congestion [Recovering/Resolving]
  - Chronic obstructive pulmonary disease [Not Recovered/Not Resolved]
  - Pulmonary thrombosis [Recovered/Resolved]
  - Heart rate irregular [Recovered/Resolved]
  - Pneumonia [Recovered/Resolved with Sequelae]
  - Chest pain [Recovering/Resolving]
  - Herpes zoster [Recovered/Resolved with Sequelae]
  - Blood pressure decreased [Unknown]

NARRATIVE: CASE EVENT DATE: 20150512
